FAERS Safety Report 20343967 (Version 1)
Quarter: 2022Q1

REPORT INFORMATION
  Report Type: Other
  Country: DE (occurrence: DE)
  Receive Date: 20220118
  Receipt Date: 20220118
  Transmission Date: 20220424
  Serious: Yes (Death)
  Sender: FDA-Public Use
  Company Number: DE-ROCHE-2981128

PATIENT
  Age: 42 Year
  Sex: Male

DRUGS (4)
  1. RITUXIMAB [Suspect]
     Active Substance: RITUXIMAB
     Indication: Haemophagocytic lymphohistiocytosis
     Route: 065
  2. DEXAMETHASONE [Suspect]
     Active Substance: DEXAMETHASONE
     Indication: Haemophagocytic lymphohistiocytosis
     Route: 065
  3. NOREPINEPHRINE [Concomitant]
     Active Substance: NOREPINEPHRINE
  4. GANCICLOVIR [Concomitant]
     Active Substance: GANCICLOVIR
     Indication: Haemophagocytic lymphohistiocytosis

REACTIONS (3)
  - Off label use [Unknown]
  - Disease recurrence [Fatal]
  - Bacterial sepsis [Fatal]
